FAERS Safety Report 6451439-4 (Version None)
Quarter: 2009Q4

REPORT INFORMATION
  Report Type: 
  Country: None (occurrence: None)
  Receive Date: 20091123
  Receipt Date: 20081020
  Transmission Date: 20100525
  Serious: Yes (Other)
  Sender: FDA-Public Use
  Company Number: US-BRISTOL-MYERS SQUIBB COMPANY-14391791

PATIENT
  Age: 51 Year
  Sex: Female

DRUGS (4)
  1. AVALIDE [Suspect]
     Indication: HYPERTENSION
  2. KETEK [Suspect]
     Indication: OTITIS MEDIA
     Dosage: TAKEN FOR PAST TWO WEEKS
  3. LEVAQUIN [Suspect]
  4. FLAGYL [Suspect]

REACTIONS (2)
  - DIARRHOEA [None]
  - HEPATITIS [None]
